FAERS Safety Report 18119904 (Version 2)
Quarter: 2020Q3

REPORT INFORMATION
  Report Type: Report from Study
  Country: GB (occurrence: GB)
  Receive Date: 20200806
  Receipt Date: 20200814
  Transmission Date: 20201103
  Serious: Yes (Other)
  Sender: FDA-Public Use
  Company Number: GB-MYLANLABS-2020M1069345

PATIENT
  Sex: Female

DRUGS (1)
  1. BRABIO 40 MG/ML SOLUTION FOR INJECTION, PRE?FILLED?SYRINGE [Suspect]
     Active Substance: GLATIRAMER ACETATE
     Indication: MULTIPLE SCLEROSIS
     Dosage: 40 MILLIGRAM, 3XW
     Route: 058
     Dates: start: 20190617

REACTIONS (7)
  - Pharyngeal paraesthesia [Unknown]
  - Feeling hot [Unknown]
  - Pruritus [Unknown]
  - Skin lesion [Unknown]
  - Muscular weakness [Unknown]
  - Drug ineffective [Unknown]
  - Contusion [Unknown]
